FAERS Safety Report 12433608 (Version 1)
Quarter: 2016Q2

REPORT INFORMATION
  Report Type: Report from Study
  Country: US (occurrence: US)
  Receive Date: 20160603
  Receipt Date: 20160603
  Transmission Date: 20160815
  Serious: Yes (Life-Threatening, Hospitalization)
  Sender: FDA-Public Use
  Company Number: US-EISAI MEDICAL RESEARCH-EC-2016-017390

PATIENT
  Age: 69 Year
  Sex: Female
  Weight: 49.4 kg

DRUGS (8)
  1. ATIVAN [Concomitant]
     Active Substance: LORAZEPAM
  2. PEPCID [Concomitant]
     Active Substance: FAMOTIDINE
  3. THYROID, PORK [Concomitant]
  4. ERIBULIN [Suspect]
     Active Substance: ERIBULIN
     Indication: BREAST CANCER METASTATIC
     Route: 041
     Dates: start: 20160523
  5. TRASTUZUMAB [Concomitant]
     Active Substance: TRASTUZUMAB
     Indication: BREAST CANCER METASTATIC
     Route: 041
     Dates: start: 20160523
  6. PERTUZUMAB [Concomitant]
     Active Substance: PERTUZUMAB
     Indication: BREAST CANCER METASTATIC
     Route: 041
     Dates: start: 20160523
  7. DUREZOL [Concomitant]
     Active Substance: DIFLUPREDNATE
  8. DELTASONE [Concomitant]
     Active Substance: PREDNISONE

REACTIONS (1)
  - Febrile neutropenia [Recovering/Resolving]

NARRATIVE: CASE EVENT DATE: 20160601
